FAERS Safety Report 12390965 (Version 1)
Quarter: 2016Q2

REPORT INFORMATION
  Report Type: Spontaneous
  Country: BR (occurrence: BR)
  Receive Date: 20160520
  Receipt Date: 20160520
  Transmission Date: 20160815
  Serious: Yes (Hospitalization, Other)
  Sender: FDA-Public Use
  Company Number: BR-009507513-1605BRA008950

PATIENT
  Age: 20 Year
  Sex: Female
  Weight: 66 kg

DRUGS (2)
  1. NUVARING [Suspect]
     Active Substance: ETHINYL ESTRADIOL\ETONOGESTREL
     Indication: CONTRACEPTION
     Dosage: CYCLICAL- 3 WEEKS OF USE AND 1 WEEK OF PAUSE
     Route: 067
     Dates: start: 2013
  2. NUVARING [Suspect]
     Active Substance: ETHINYL ESTRADIOL\ETONOGESTREL
     Dosage: CYCLICAL- 3 WEEKS OF USE AND 1 WEEK OF PAUSE
     Route: 067
     Dates: start: 20160502

REACTIONS (6)
  - Vulvovaginal discomfort [Unknown]
  - Device difficult to use [Recovered/Resolved]
  - Appendicitis [Recovered/Resolved]
  - Vaginal inflammation [Recovering/Resolving]
  - Inguinal hernia [Recovered/Resolved]
  - Device breakage [Unknown]

NARRATIVE: CASE EVENT DATE: 201601
